FAERS Safety Report 7014642-0 (Version None)
Quarter: 2010Q3

REPORT INFORMATION
  Report Type: 
  Country: None (occurrence: None)
  Receive Date: 20100927
  Receipt Date: 20100920
  Transmission Date: 20110219
  Serious: Yes (Hospitalization)
  Sender: FDA-Public Use
  Company Number: IT-BAYER-201040247GPV

PATIENT
  Age: 67 Year
  Sex: Male

DRUGS (6)
  1. NEXAVAR [Suspect]
     Indication: HEPATIC NEOPLASM MALIGNANT
     Dosage: TOTAL DAILY DOSE: 800 MG  UNIT DOSE: 200 MG
     Route: 048
     Dates: start: 20100805, end: 20100810
  2. LAEVOLAC [Concomitant]
     Route: 048
  3. INDERAL [Concomitant]
     Route: 048
  4. KANRENOL [Concomitant]
     Route: 048
  5. HUMALOG [Concomitant]
     Route: 058
  6. HUMALOG [Concomitant]
     Route: 058

REACTIONS (2)
  - ASCITES [None]
  - JAUNDICE [None]
